FAERS Safety Report 17552519 (Version 1)
Quarter: 2020Q1

REPORT INFORMATION
  Report Type: Other
  Country: US (occurrence: US)
  Receive Date: 20200318
  Receipt Date: 20200318
  Transmission Date: 20200409
  Serious: Yes (Life-Threatening, Hospitalization)
  Sender: FDA-Public Use
  Company Number: US-STANDARD HOMEOPATHIC COMPANY-2081726

PATIENT
  Age: 5 Month
  Sex: Female

DRUGS (1)
  1. BABY TEETHING (HYLAND HOMEOPATHIC) [Suspect]
     Active Substance: HOMEOPATHICS
     Indication: ANALGESIC THERAPY
     Route: 048
     Dates: start: 20200303, end: 20200303

REACTIONS (3)
  - Lethargy [None]
  - Vomiting [Unknown]
  - Loss of consciousness [None]

NARRATIVE: CASE EVENT DATE: 20200303
